FAERS Safety Report 6614528-7 (Version None)
Quarter: 2010Q1

REPORT INFORMATION
  Report Type: 
  Country: None (occurrence: None)
  Receive Date: 20100304
  Receipt Date: 20100304
  Transmission Date: 20100710
  Serious: No
  Sender: FDA-Public Use
  Company Number: None

PATIENT
  Sex: Female

DRUGS (1)
  1. CAPZASIN [Suspect]
     Indication: ARTHRITIS
     Dates: start: 20100218

REACTIONS (2)
  - PAIN OF SKIN [None]
  - SKIN BURNING SENSATION [None]
